FAERS Safety Report 25545978 (Version 1)
Quarter: 2025Q3

REPORT INFORMATION
  Report Type: Spontaneous
  Country: US (occurrence: US)
  Receive Date: 20250712
  Receipt Date: 20250712
  Transmission Date: 20251021
  Serious: Yes (Other)
  Sender: UNITED THERAPEUTICS
  Company Number: US-UNITED THERAPEUTICS-UNT-2025-023311

PATIENT
  Age: 5 Year
  Sex: Female

DRUGS (6)
  1. UNITUXIN [Suspect]
     Active Substance: DINUTUXIMAB
     Indication: Neuroblastoma
     Route: 041
  2. LORLATINIB [Suspect]
     Active Substance: LORLATINIB
     Indication: Neuroblastoma
  3. LORLATINIB [Suspect]
     Active Substance: LORLATINIB
  4. IRINOTECAN HYDROCHLORIDE [Concomitant]
     Active Substance: IRINOTECAN HYDROCHLORIDE
     Indication: Neuroblastoma
     Dosage: 50 MG/M2, QD [ON DAYS 1?5]
     Route: 041
  5. TEMOZOLOMIDE [Concomitant]
     Active Substance: TEMOZOLOMIDE
     Indication: Neuroblastoma
     Dosage: 150 MG/M2, QD [ON DAYS 1?5]
  6. GRANULOCYTE-MACROPHAGE COLONY-STIMULATING FACTOR [Concomitant]
     Active Substance: GRANULOCYTE-MACROPHAGE COLONY-STIMULATING FACTOR
     Indication: Neuroblastoma

REACTIONS (3)
  - Pulmonary toxicity [Recovered/Resolved]
  - Neuroblastoma [Unknown]
  - Off label use [Unknown]
